FAERS Safety Report 8896284 (Version 2)
Quarter: 2012Q4

REPORT INFORMATION
  Report Type: Spontaneous
  Country: IE (occurrence: None)
  Receive Date: 20121031
  Receipt Date: 20121127
  Transmission Date: 20130627
  Serious: Yes (Other)
  Sender: FDA-Public Use
  Company Number: IE-009878

PATIENT
  Age: 66 Year
  Sex: Male

DRUGS (1)
  1. DEGARELIX [Suspect]
     Indication: PROSTATE CANCER
     Route: 058
     Dates: start: 2010

REACTIONS (2)
  - Abdominal distension [None]
  - Skin discolouration [None]
